FAERS Safety Report 7822922-1 (Version None)
Quarter: 2011Q4

REPORT INFORMATION
  Report Type: 
  Country: None (occurrence: None)
  Receive Date: 20111018
  Receipt Date: 20100819
  Transmission Date: 20120403
  Serious: No
  Sender: FDA-Public Use
  Company Number: US-ASTRAZENECA-2010SE17538

PATIENT
  Age: 26904 Day
  Sex: Male
  Weight: 115.2 kg

DRUGS (9)
  1. FISHOILS [Concomitant]
  2. SIMVASTATIN [Concomitant]
  3. LISINOPRIL [Concomitant]
  4. MELOXICAM [Concomitant]
  5. SYMBICORT [Suspect]
     Indication: CHRONIC OBSTRUCTIVE PULMONARY DISEASE
     Dosage: 160/4.5 UG 2 PUFFS TWICE A DAY
     Route: 055
     Dates: start: 20080201
  6. MULTI-VITAMINS [Concomitant]
  7. ASPIRIN [Concomitant]
  8. PLAVIX [Concomitant]
  9. GLUCOSAMINE/CHONDROITIN [Concomitant]

REACTIONS (1)
  - CORONARY ARTERY DISEASE [None]
